FAERS Safety Report 5069397-6 (Version None)
Quarter: 2006Q3

REPORT INFORMATION
  Report Type: 
  Country: None (occurrence: None)
  Receive Date: 20060803
  Receipt Date: 20060526
  Transmission Date: 20061208
  Serious: Yes (Other)
  Sender: FDA-Public Use
  Company Number: US-BAYER-200613594BWH

PATIENT
  Sex: Female

DRUGS (1)
  1. AVELOX [Suspect]
     Indication: DRUG USE FOR UNKNOWN INDICATION
     Route: 048

REACTIONS (2)
  - ELECTROCARDIOGRAM QT CORRECTED INTERVAL PROLONGED [None]
  - HEART RATE DECREASED [None]
